FAERS Safety Report 18654435 (Version 3)
Quarter: 2020Q4

REPORT INFORMATION
  Report Type: Spontaneous
  Country: JP (occurrence: JP)
  Receive Date: 20201223
  Receipt Date: 20201229
  Transmission Date: 20210114
  Serious: Yes (Hospitalization)
  Sender: FDA-Public Use
  Company Number: JP-GUERBET-JP-20200216

PATIENT
  Age: 78 Year
  Sex: Female

DRUGS (1)
  1. LIPIODOL [Suspect]
     Active Substance: ETHIODIZED OIL
     Indication: LYMPHANGIOGRAM
     Route: 027

REACTIONS (3)
  - Lymphatic fistula [Recovered/Resolved]
  - Pericardial effusion [Recovered/Resolved]
  - Blood pressure decreased [Recovered/Resolved]
